FAERS Safety Report 4548481-7 (Version None)
Quarter: 2005Q1

REPORT INFORMATION
  Report Type: 
  Country: None (occurrence: None)
  Receive Date: 20050110
  Receipt Date: 20041213
  Transmission Date: 20050727
  Serious: Yes (Other)
  Sender: FDA-Public Use
  Company Number: US-GLAXOSMITHKLINE-A0537109A

PATIENT
  Age: 80 Year
  Sex: Male

DRUGS (2)
  1. VALTREX [Suspect]
     Indication: HERPES ZOSTER
     Dosage: 1G THREE TIMES PER DAY
     Route: 048
     Dates: start: 20041212
  2. DIGOXIN [Concomitant]
     Indication: DRUG USE FOR UNKNOWN INDICATION

REACTIONS (7)
  - DRUG LEVEL DECREASED [None]
  - FOREIGN BODY TRAUMA [None]
  - LIP DISCOLOURATION [None]
  - LOSS OF CONSCIOUSNESS [None]
  - SUPRAVENTRICULAR TACHYCARDIA [None]
  - TACHYARRHYTHMIA [None]
  - TONGUE DISCOLOURATION [None]
